FAERS Safety Report 9694794 (Version 1)
Quarter: 2013Q4

REPORT INFORMATION
  Report Type: Report from Study
  Country: CZ (occurrence: CZ)
  Receive Date: 20131119
  Receipt Date: 20131119
  Transmission Date: 20140711
  Serious: Yes (Death, Other)
  Sender: FDA-Public Use
  Company Number: CZ-ROCHE-1304133

PATIENT
  Sex: 0

DRUGS (1)
  1. MYCOPHENOLATE MOFETIL [Suspect]
     Indication: PROPHYLAXIS AGAINST TRANSPLANT REJECTION
     Route: 048

REACTIONS (7)
  - Sepsis [Fatal]
  - Death [Fatal]
  - Cytomegalovirus infection [Unknown]
  - Viral infection [Unknown]
  - Leukopenia [Unknown]
  - Neutropenia [Unknown]
  - Neoplasm malignant [Unknown]
